FAERS Safety Report 25399899 (Version 1)
Quarter: 2025Q2

REPORT INFORMATION
  Report Type: Report from Study
  Country: CA (occurrence: CA)
  Receive Date: 20250605
  Receipt Date: 20250605
  Transmission Date: 20250717
  Serious: Yes (Hospitalization, Other)
  Sender: TAKEDA
  Company Number: CA-TAKEDA-2019TUS001059

PATIENT
  Sex: Female

DRUGS (22)
  1. VEDOLIZUMAB [Suspect]
     Active Substance: VEDOLIZUMAB
     Indication: Colitis ulcerative
  2. VEDOLIZUMAB [Suspect]
     Active Substance: VEDOLIZUMAB
  3. VEDOLIZUMAB [Suspect]
     Active Substance: VEDOLIZUMAB
  4. VEDOLIZUMAB [Suspect]
     Active Substance: VEDOLIZUMAB
  5. VEDOLIZUMAB [Suspect]
     Active Substance: VEDOLIZUMAB
     Indication: Colitis ulcerative
     Dosage: 108 MILLIGRAM, Q2WEEKS
     Dates: start: 20231127
  6. POTASSIUM [Concomitant]
     Active Substance: POTASSIUM
  7. OMEPRAZOLE [Concomitant]
     Active Substance: OMEPRAZOLE
  8. INDAPAMIDE [Concomitant]
     Active Substance: INDAPAMIDE
  9. MAVIK [Concomitant]
     Active Substance: TRANDOLAPRIL
  10. SIMVASTATIN [Concomitant]
     Active Substance: SIMVASTATIN
  11. LORAZEPAM [Concomitant]
     Active Substance: LORAZEPAM
  12. ATIVAN [Concomitant]
     Active Substance: LORAZEPAM
  13. SYNTHROID [Concomitant]
     Active Substance: LEVOTHYROXINE SODIUM
  14. TRANDOLAPRIL [Concomitant]
     Active Substance: TRANDOLAPRIL
  15. PANTOPRAZOLE [Concomitant]
     Active Substance: PANTOPRAZOLE
  16. BISOPROLOL [Concomitant]
     Active Substance: BISOPROLOL
  17. AMLODIPINE [Concomitant]
     Active Substance: AMLODIPINE BESYLATE
  18. METFORMIN [Concomitant]
     Active Substance: METFORMIN HYDROCHLORIDE
  19. EZETIMIBE [Concomitant]
     Active Substance: EZETIMIBE
  20. MAGNESIUM [Concomitant]
     Active Substance: MAGNESIUM
  21. INSULIN NOS [Concomitant]
     Active Substance: INSULIN NOS
  22. TRESIBA [Concomitant]
     Active Substance: INSULIN DEGLUDEC

REACTIONS (1)
  - Obstruction gastric [Unknown]
